FAERS Safety Report 5480082-9 (Version None)
Quarter: 2007Q4

REPORT INFORMATION
  Report Type: 
  Country: None (occurrence: None)
  Receive Date: 20071008
  Receipt Date: 20070926
  Transmission Date: 20080405
  Serious: Yes (Other)
  Sender: FDA-Public Use
  Company Number: GB-PFIZER INC-2007081642

PATIENT
  Age: 53 Year
  Sex: Female

DRUGS (6)
  1. VARENICLINE TABLETS [Suspect]
     Indication: SMOKING CESSATION THERAPY
     Route: 048
     Dates: start: 20070613, end: 20070720
  2. LANSOPRAZOLE [Concomitant]
  3. SALBUTAMOL [Concomitant]
     Route: 055
  4. SYMBICORT [Concomitant]
     Route: 055
  5. TIOTROPIUM BROMIDE [Concomitant]
     Route: 055
  6. TRAMADOL HCL [Concomitant]

REACTIONS (3)
  - CHAPPED LIPS [None]
  - CONTUSION [None]
  - ORAL PAIN [None]
